FAERS Safety Report 6915044-5 (Version None)
Quarter: 2010Q3

REPORT INFORMATION
  Report Type: 
  Country: None (occurrence: None)
  Receive Date: 20100809
  Receipt Date: 20100804
  Transmission Date: 20110219
  Serious: Yes (Life-Threatening, Hospitalization)
  Sender: FDA-Public Use
  Company Number: US-WYE-H16683610

PATIENT
  Age: 45 Year
  Sex: Female
  Weight: 79.45 kg

DRUGS (4)
  1. PRISTIQ [Suspect]
     Indication: DEPRESSION
     Route: 048
     Dates: start: 20090401, end: 20090828
  2. PRISTIQ [Suspect]
     Indication: MIGRAINE
  3. BISOPROLOL [Suspect]
     Dosage: UNKNOWN
     Dates: start: 20090401
  4. SAVELLA [Suspect]
     Dosage: UNKNOWN
     Dates: start: 20090801, end: 20090801

REACTIONS (5)
  - HYPERSENSITIVITY [None]
  - LIP SWELLING [None]
  - OEDEMA MOUTH [None]
  - PHARYNGEAL OEDEMA [None]
  - RASH [None]
